FAERS Safety Report 17444516 (Version 3)
Quarter: 2020Q1

REPORT INFORMATION
  Report Type: Spontaneous
  Country: GB (occurrence: GB)
  Receive Date: 20200221
  Receipt Date: 20200228
  Transmission Date: 20200409
  Serious: Yes (Other)
  Sender: FDA-Public Use
  Company Number: GB-009507513-2002GBR007264

PATIENT
  Age: 65 Year
  Sex: Female

DRUGS (1)
  1. PEGINTERFERON ALFA-2B [Suspect]
     Active Substance: PEGINTERFERON ALFA-2B
     Indication: SYSTEMIC MASTOCYTOSIS
     Dosage: UNK, RECEIVED FOR 10 YEARS

REACTIONS (2)
  - Neuromyelitis optica spectrum disorder [Unknown]
  - Product use in unapproved indication [Unknown]
